FAERS Safety Report 8605374-3 (Version None)
Quarter: 2012Q3

REPORT INFORMATION
  Report Type: 
  Country: None (occurrence: None)
  Receive Date: 20120820
  Receipt Date: 20120813
  Transmission Date: 20120928
  Serious: Yes (Other)
  Sender: FDA-Public Use
  Company Number: US-PFIZER INC-2012106417

PATIENT
  Age: 66 Year
  Sex: Male
  Weight: 95 kg

DRUGS (14)
  1. INLYTA [Suspect]
     Dosage: 5 MG, 2X/DAY
     Route: 048
     Dates: start: 20120426
  2. INLYTA [Suspect]
     Dosage: 6 MG, 1X/DAY
  3. INLYTA [Suspect]
     Dosage: 5 MG, 1X/DAY
     Route: 048
     Dates: start: 20120401, end: 20120401
  4. AZELASTINE [Concomitant]
     Dosage: UNK, 2X/DAY
     Route: 045
  5. ASCORBIC ACID [Concomitant]
     Indication: LEUKAEMIA
     Dosage: UNK, 2X/DAY
     Route: 048
  6. TAMSULOSIN [Concomitant]
     Indication: PROSTATOMEGALY
     Dosage: UNK, 2X/DAY
     Route: 048
  7. PREDNISONE [Concomitant]
     Dosage: 30 MG, 3X/DAY
  8. FLUTICASONE PROPIONATE [Concomitant]
     Dosage: 250/50 MG, 2X/DAY
  9. ALBUTEROL [Concomitant]
     Indication: DYSPNOEA
     Dosage: UNK
  10. INLYTA [Suspect]
     Indication: RENAL CANCER
     Dosage: 5 MG, 2X/DAY
     Route: 048
     Dates: start: 20120321, end: 20120401
  11. IRON [Concomitant]
     Dosage: UNK, 2X/DAY
  12. SINGULAIR [Concomitant]
     Indication: SINUS DISORDER
     Dosage: 10 MG, UNK
     Route: 048
  13. CELEBREX [Concomitant]
     Dosage: 200 MG, 1X/DAY
  14. LORTAB [Concomitant]
     Dosage: 7.5/500 MG, 3X/DAY

REACTIONS (7)
  - FOOD INTOLERANCE [None]
  - PNEUMONIA [None]
  - FLATULENCE [None]
  - ORAL FUNGAL INFECTION [None]
  - DYSPNOEA [None]
  - DIARRHOEA [None]
  - ORAL DISORDER [None]
